FAERS Safety Report 9548441 (Version 1)
Quarter: 2013Q3

REPORT INFORMATION
  Report Type: Spontaneous
  Country: US (occurrence: US)
  Receive Date: 20130924
  Receipt Date: 20130924
  Transmission Date: 20140515
  Serious: Yes (Other)
  Sender: FDA-Public Use
  Company Number: US-BAYER-2013-114513

PATIENT
  Age: 35 Year
  Sex: Female

DRUGS (9)
  1. PAROXETINE [Concomitant]
     Dosage: 40 MG, UNK
     Dates: start: 20091215
  2. ZOLPIDEM [Concomitant]
     Dosage: 10 MG, UNK
     Dates: start: 20091215
  3. BUDEPRION [Concomitant]
     Dosage: 150 MG, UNK
     Dates: start: 20100106
  4. BUDEPRION [Concomitant]
     Dosage: 150 MG, UNK
     Dates: start: 20100201
  5. VYVANSE [Concomitant]
     Dosage: 20 MG, UNK
     Dates: start: 20100106
  6. VYVANSE [Concomitant]
     Dosage: 20 MG, UNK
     Dates: start: 20100106
  7. IBUPROFENE [Concomitant]
  8. SULFAMETHOXAZOLE [Concomitant]
     Dosage: UNK
     Dates: start: 20100115
  9. YAZ [Suspect]

REACTIONS (1)
  - Thrombophlebitis superficial [None]
